FAERS Safety Report 9397666 (Version 3)
Quarter: 2013Q3

REPORT INFORMATION
  Report Type: Spontaneous
  Country: KR (occurrence: KR)
  Receive Date: 20130712
  Receipt Date: 20130906
  Transmission Date: 20140515
  Serious: Yes (Death)
  Sender: FDA-Public Use
  Company Number: KR-CELGENEUS-286-50794-13070250

PATIENT
  Age: 77 Year
  Sex: Male

DRUGS (6)
  1. VIDAZA [Suspect]
     Indication: MYELODYSPLASTIC SYNDROME
     Dosage: 125 MILLIGRAM
     Route: 058
     Dates: start: 20130312, end: 20130501
  2. HERBEN RETARD [Concomitant]
     Indication: ANGINA UNSTABLE
     Dosage: 90 MILLIGRAM
     Route: 048
     Dates: start: 2007, end: 20130609
  3. ISOTRIL [Concomitant]
     Indication: ANGINA UNSTABLE
     Dosage: 60 MILLIGRAM
     Route: 048
     Dates: start: 2007, end: 20130609
  4. MOLSITON [Concomitant]
     Indication: ANGINA UNSTABLE
     Dosage: 4 MILLIGRAM
     Route: 048
     Dates: start: 2007, end: 20130609
  5. CRAVAT [Concomitant]
     Indication: INFECTION PROPHYLAXIS
     Dosage: 500 MILLIGRAM
     Route: 048
     Dates: start: 20120130, end: 20130609
  6. SPORANOX [Concomitant]
     Indication: INFECTION PROPHYLAXIS
     Dosage: 200 MILLIGRAM
     Route: 048
     Dates: start: 20130325, end: 20130609

REACTIONS (2)
  - Petroleum distillate poisoning [Fatal]
  - Constipation [Not Recovered/Not Resolved]
